FAERS Safety Report 7926469-3 (Version None)
Quarter: 2011Q4

REPORT INFORMATION
  Report Type: 
  Country: None (occurrence: None)
  Receive Date: 20111118
  Receipt Date: 20111111
  Transmission Date: 20120403
  Serious: No
  Sender: FDA-Public Use
  Company Number: US-BIOGENIDEC-2011BI043208

PATIENT
  Age: 55 Year
  Sex: Female

DRUGS (5)
  1. TYSABRI [Suspect]
     Indication: MULTIPLE SCLEROSIS
     Route: 042
     Dates: start: 20110818, end: 20110901
  2. BACLOFEN [Concomitant]
     Indication: MUSCLE SPASMS
  3. FOSTIUM [Concomitant]
     Indication: OSTEOPOROSIS
  4. CALTRATE WITH VITAMIN D [Concomitant]
     Indication: OSTEOPOROSIS
  5. CYMBALTA [Concomitant]
     Indication: PAIN

REACTIONS (2)
  - CONTUSION [None]
  - PAIN IN EXTREMITY [None]
